FAERS Safety Report 18312005 (Version 1)
Quarter: 2020Q3

REPORT INFORMATION
  Report Type: Spontaneous
  Country: US (occurrence: US)
  Receive Date: 20200924
  Receipt Date: 20200924
  Transmission Date: 20201103
  Serious: Yes (Hospitalization)
  Sender: FDA-Public Use
  Company Number: None

PATIENT
  Age: 51 Year
  Sex: Female
  Weight: 75.3 kg

DRUGS (20)
  1. NOTRIPTYLINE [Concomitant]
     Dates: start: 20120320
  2. BUPROPION. [Concomitant]
     Active Substance: BUPROPION
     Dates: start: 20120320
  3. OXYCONTIN [Concomitant]
     Active Substance: OXYCODONE HYDROCHLORIDE
  4. NORETHINDRONE. [Concomitant]
     Active Substance: NORETHINDRONE
  5. OCREVUS [Suspect]
     Active Substance: OCRELIZUMAB
     Indication: MULTIPLE SCLEROSIS
     Dosage: ?          OTHER FREQUENCY:EVERY6MONTHS ;?
     Route: 042
     Dates: start: 20180813
  6. AXERT [Concomitant]
     Active Substance: ALMOTRIPTAN MALATE
     Dates: start: 20120319
  7. HYDROCODONE [Concomitant]
     Active Substance: HYDROCODONE
     Dates: start: 20160201
  8. MULTIVITAMIN [Concomitant]
     Active Substance: VITAMINS
  9. XARELTO [Concomitant]
     Active Substance: RIVAROXABAN
     Dates: start: 20160201
  10. METOCLOPRAMIDE. [Concomitant]
     Active Substance: METOCLOPRAMIDE
  11. ALPRAZOLAM. [Concomitant]
     Active Substance: ALPRAZOLAM
     Dates: start: 20120320
  12. FUROSEMIDE. [Concomitant]
     Active Substance: FUROSEMIDE
     Dates: start: 20160607
  13. VITAMIN B12 [Concomitant]
     Active Substance: CYANOCOBALAMIN
  14. VESICARE [Concomitant]
     Active Substance: SOLIFENACIN SUCCINATE
     Dates: start: 20160202
  15. GABAPENTIN. [Concomitant]
     Active Substance: GABAPENTIN
  16. AMANTADINE. [Concomitant]
     Active Substance: AMANTADINE HYDROCHLORIDE
  17. ABILIFY [Concomitant]
     Active Substance: ARIPIPRAZOLE
  18. VITAMIN D3 [Concomitant]
     Active Substance: CHOLECALCIFEROL
  19. MIRALAX [Concomitant]
     Active Substance: POLYETHYLENE GLYCOL 3350
  20. BACLOFEN. [Concomitant]
     Active Substance: BACLOFEN
     Dates: start: 20120323

REACTIONS (1)
  - Urinary tract infection [None]

NARRATIVE: CASE EVENT DATE: 20200814
